FAERS Safety Report 21652314 (Version 3)
Quarter: 2023Q1

REPORT INFORMATION
  Report Type: Spontaneous
  Country: US (occurrence: US)
  Receive Date: 20221128
  Receipt Date: 20230112
  Transmission Date: 20230417
  Serious: Yes (Other)
  Sender: FDA-Public Use
  Company Number: US-PFIZER INC-202201318575

PATIENT
  Age: 62 Year
  Sex: Female
  Weight: 68.027 kg

DRUGS (3)
  1. PAXLOVID [Suspect]
     Active Substance: NIRMATRELVIR\RITONAVIR
     Indication: COVID-19 treatment
     Dosage: 2X/DAY (LAST 3 DOSES - AS PRESCRIBED, LAST 7 DOSES - NIRMATRELVIR 300 MG ONLY, NO RITONAVIR)
     Route: 048
     Dates: start: 20221118, end: 20221123
  2. TEMAZEPAM [Concomitant]
     Active Substance: TEMAZEPAM
     Indication: Insomnia
     Dosage: 7.5 TO 15 MG, 1X/DAY (QHS)
  3. SUMATRIPTAN [Concomitant]
     Active Substance: SUMATRIPTAN
     Indication: Migraine
     Dosage: UNK, AS NEEDED (PRN)

REACTIONS (10)
  - Stevens-Johnson syndrome [Unknown]
  - Therapeutic product effect incomplete [Unknown]
  - Skin burning sensation [Recovered/Resolved]
  - Pruritus [Recovered/Resolved]
  - Sinusitis [Unknown]
  - Oropharyngeal pain [Unknown]
  - Fatigue [Not Recovered/Not Resolved]
  - Rash macular [Recovered/Resolved]
  - Malaise [Unknown]
  - Off label use [Unknown]

NARRATIVE: CASE EVENT DATE: 20221101
